FAERS Safety Report 20644643 (Version 1)
Quarter: 2022Q1

REPORT INFORMATION
  Report Type: Spontaneous
  Country: US (occurrence: US)
  Receive Date: 20220328
  Receipt Date: 20220328
  Transmission Date: 20220423
  Serious: No
  Sender: FDA-Public Use
  Company Number: US-SA-SAC20220323001405

PATIENT
  Age: 54 Year
  Sex: Male

DRUGS (2)
  1. DUPIXENT [Suspect]
     Active Substance: DUPILUMAB
     Indication: Psoriasis
     Dosage: 300 MG, OTHER
     Route: 058
     Dates: start: 201911
  2. RINVOQ [Concomitant]
     Active Substance: UPADACITINIB

REACTIONS (4)
  - Psoriasis [Unknown]
  - Skin fissures [Unknown]
  - Skin lesion [Unknown]
  - Product use in unapproved indication [Unknown]

NARRATIVE: CASE EVENT DATE: 20191101
